FAERS Safety Report 14209078 (Version 5)
Quarter: 2019Q2

REPORT INFORMATION
  Report Type: Spontaneous
  Country: US (occurrence: US)
  Receive Date: 20171121
  Receipt Date: 20190531
  Transmission Date: 20190711
  Serious: Yes (Hospitalization, Other)
  Sender: FDA-Public Use
  Company Number: US-JNJFOC-20171104608

PATIENT
  Age: 49 Year
  Sex: Female

DRUGS (8)
  1. XARELTO [Suspect]
     Active Substance: RIVAROXABAN
     Indication: DEEP VEIN THROMBOSIS
     Dosage: 20 MG AND 15 MG
     Route: 048
     Dates: start: 20140512, end: 20161115
  2. XARELTO [Suspect]
     Active Substance: RIVAROXABAN
     Indication: PULMONARY EMBOLISM
     Dosage: 20 MG AND 15 MG
     Route: 048
     Dates: start: 20140512, end: 20161115
  3. ELIQUIS [Suspect]
     Active Substance: APIXABAN
     Indication: PRODUCT USED FOR UNKNOWN INDICATION
     Route: 065
     Dates: start: 201611, end: 2017
  4. METOPROLOL. [Concomitant]
     Active Substance: METOPROLOL
     Indication: PRODUCT USED FOR UNKNOWN INDICATION
     Route: 065
  5. OMEPRAZOLE. [Concomitant]
     Active Substance: OMEPRAZOLE
     Indication: PRODUCT USED FOR UNKNOWN INDICATION
     Route: 065
  6. CLONIDINE. [Concomitant]
     Active Substance: CLONIDINE
     Indication: PRODUCT USED FOR UNKNOWN INDICATION
     Route: 065
  7. XARELTO [Suspect]
     Active Substance: RIVAROXABAN
     Indication: COMPARTMENT SYNDROME
     Dosage: 20 MG AND 15 MG
     Route: 048
     Dates: start: 20140512, end: 20161115
  8. XARELTO [Suspect]
     Active Substance: RIVAROXABAN
     Indication: ANTIPHOSPHOLIPID ANTIBODIES
     Dosage: 20 MG AND 15 MG
     Route: 048
     Dates: start: 20140512, end: 20161115

REACTIONS (2)
  - Internal haemorrhage [Unknown]
  - Lower gastrointestinal haemorrhage [Recovering/Resolving]

NARRATIVE: CASE EVENT DATE: 20161103
